FAERS Safety Report 6598885-6 (Version None)
Quarter: 2010Q1

REPORT INFORMATION
  Report Type: 
  Country: None (occurrence: None)
  Receive Date: 20100224
  Receipt Date: 20090115
  Transmission Date: 20100710
  Serious: No
  Sender: FDA-Public Use
  Company Number: US-BRISTOL-MYERS SQUIBB COMPANY-14474118

PATIENT
  Sex: Male

DRUGS (3)
  1. GLUCOPHAGE [Suspect]
  2. LISINOPRIL [Suspect]
  3. CARTIA XT [Suspect]

REACTIONS (1)
  - ERECTILE DYSFUNCTION [None]
